FAERS Safety Report 9165972 (Version 1)
Quarter: 2013Q1

REPORT INFORMATION
  Report Type: Spontaneous
  Country: US (occurrence: US)
  Receive Date: 20130315
  Receipt Date: 20130315
  Transmission Date: 20140127
  Serious: Yes (Disabling)
  Sender: FDA-Public Use
  Company Number: US-GLAXOSMITHKLINE-A1015111A

PATIENT
  Age: 63 Year
  Sex: Male

DRUGS (2)
  1. VOTRIENT [Suspect]
     Indication: RENAL CELL CARCINOMA
     Dosage: 800TAB PER DAY
     Route: 048
     Dates: start: 20110603
  2. NO CONCURRENT MEDICATION [Concomitant]

REACTIONS (2)
  - Rash [Not Recovered/Not Resolved]
  - Local swelling [Not Recovered/Not Resolved]
